FAERS Safety Report 8625306-1 (Version None)
Quarter: 2012Q3

REPORT INFORMATION
  Report Type: 
  Country: None (occurrence: None)
  Receive Date: 20120827
  Receipt Date: 20120816
  Transmission Date: 20120928
  Serious: Yes (Other)
  Sender: FDA-Public Use
  Company Number: US-ASTRAZENECA-2011SE37214

PATIENT
  Age: 65 Year
  Sex: Female
  Weight: 52.2 kg

DRUGS (12)
  1. SEROQUEL [Suspect]
     Indication: DEPRESSION
     Route: 048
     Dates: start: 20030101
  2. FENTANYL [Concomitant]
     Indication: PAIN
     Dosage: 50 MCG/ HOUR Q3D
     Route: 061
     Dates: start: 19990617
  3. SEROQUEL [Suspect]
     Route: 048
  4. MOBIC [Concomitant]
  5. CLONAZEPAM [Concomitant]
     Indication: ANXIETY
     Route: 048
  6. SEROQUEL [Suspect]
     Indication: AFFECTIVE DISORDER
     Route: 048
     Dates: start: 20030101
  7. AMBIEN [Concomitant]
     Indication: SLEEP DISORDER
     Route: 048
  8. SEROQUEL [Suspect]
     Route: 048
  9. TRAZODONE HYDROCHLORIDE [Concomitant]
     Indication: AFFECTIVE DISORDER
     Route: 048
     Dates: start: 20080617
  10. PRAVASTATIN [Concomitant]
  11. TRAZODONE HYDROCHLORIDE [Concomitant]
     Indication: SLEEP DISORDER
     Route: 048
     Dates: start: 20080617
  12. ZOLPIDEM [Concomitant]
     Indication: SLEEP DISORDER
     Route: 048
     Dates: start: 20060617

REACTIONS (6)
  - HIP FRACTURE [None]
  - MALAISE [None]
  - ARTHRITIS [None]
  - INFLUENZA [None]
  - MEMORY IMPAIRMENT [None]
  - FALL [None]
